FAERS Safety Report 13240121 (Version 1)
Quarter: 2017Q1

REPORT INFORMATION
  Report Type: Spontaneous
  Country: BR (occurrence: BR)
  Receive Date: 20170216
  Receipt Date: 20170216
  Transmission Date: 20170428
  Serious: Yes (Other)
  Sender: FDA-Public Use
  Company Number: BR-GLAXOSMITHKLINE-BR2017GSK019493

PATIENT
  Sex: Female
  Weight: 65.5 kg

DRUGS (1)
  1. BENLYSTA [Suspect]
     Active Substance: BELIMUMAB
     Indication: SYSTEMIC LUPUS ERYTHEMATOSUS
     Dosage: UNK
     Dates: start: 20160812

REACTIONS (3)
  - Depression [Unknown]
  - Suicidal ideation [Unknown]
  - Drug ineffective [Unknown]
